FAERS Safety Report 24092266 (Version 7)
Quarter: 2024Q4

REPORT INFORMATION
  Report Type: Other
  Country: US (occurrence: US)
  Receive Date: 20240715
  Receipt Date: 20241224
  Transmission Date: 20250114
  Serious: Yes (Hospitalization)
  Sender: TRAVERE THERAPEUTICS
  Company Number: US-TRAVERE-2024TVT00687

PATIENT
  Sex: Male

DRUGS (24)
  1. FILSPARI [Suspect]
     Active Substance: SPARSENTAN
     Indication: Product used for unknown indication
     Route: 048
     Dates: start: 20240528
  2. FILSPARI [Suspect]
     Active Substance: SPARSENTAN
     Indication: IgA nephropathy
     Route: 048
  3. FILSPARI [Suspect]
     Active Substance: SPARSENTAN
     Route: 048
     Dates: start: 20240906
  4. PREDNISONE [Suspect]
     Active Substance: PREDNISONE
     Indication: Glomerular filtration rate decreased
     Dosage: 60 MG DAILY FOR 4 WEEKS
     Dates: start: 20240627
  5. PREDNISONE [Suspect]
     Active Substance: PREDNISONE
     Indication: Protein urine
  6. MELATONIN [Concomitant]
     Active Substance: MELATONIN
  7. VITAMINS [Concomitant]
     Active Substance: VITAMINS
  8. TAMSULOSIN HYDROCHLORIDE [Concomitant]
     Active Substance: TAMSULOSIN HYDROCHLORIDE
  9. CLARITIN [Concomitant]
     Active Substance: LORATADINE
  10. LEVOTHYROXINE SODIUM [Concomitant]
     Active Substance: LEVOTHYROXINE SODIUM
  11. FAMOTIDINE [Concomitant]
     Active Substance: FAMOTIDINE
  12. VITAMIN D3 [Concomitant]
     Active Substance: CHOLECALCIFEROL
  13. CITALOPRAM HYDROBROMIDE [Concomitant]
     Active Substance: CITALOPRAM HYDROBROMIDE
  14. LOSARTAN POTASSIUM [Concomitant]
     Active Substance: LOSARTAN POTASSIUM
  15. PANTOPRAZOLE SODIUM [Concomitant]
     Active Substance: PANTOPRAZOLE SODIUM
  16. TARPEYO [Concomitant]
     Active Substance: BUDESONIDE
  17. CALCIUM CARBONATE [Concomitant]
     Active Substance: CALCIUM CARBONATE
  18. VITAMIN D [Concomitant]
     Active Substance: VITAMIN D NOS
  19. FAMOTIDINE [Concomitant]
     Active Substance: FAMOTIDINE
  20. BACTRIM [Concomitant]
     Active Substance: SULFAMETHOXAZOLE\TRIMETHOPRIM
  21. FLOMAX [Concomitant]
     Active Substance: TAMSULOSIN HYDROCHLORIDE
  22. CITALOPRAM [Concomitant]
     Active Substance: CITALOPRAM
  23. LEVOTHYROXINE [Concomitant]
     Active Substance: LEVOTHYROXINE
  24. PANTOPRAZOLE [Concomitant]
     Active Substance: PANTOPRAZOLE

REACTIONS (9)
  - Blood glucose increased [Recovering/Resolving]
  - Malaise [Unknown]
  - Drug interaction [Unknown]
  - Brain fog [Unknown]
  - Fatigue [None]
  - Somnolence [None]
  - Tremor [Unknown]
  - Memory impairment [Unknown]
  - Dizziness [Unknown]
